FAERS Safety Report 25831603 (Version 1)
Quarter: 2025Q3

REPORT INFORMATION
  Report Type: Spontaneous
  Country: CN (occurrence: CN)
  Receive Date: 20250922
  Receipt Date: 20250922
  Transmission Date: 20251020
  Serious: Yes (Other)
  Sender: COHERUS
  Company Number: CN-SHANGHAI JUNSHI BIOSCIENCES CO., LTD.-CN2025015728

PATIENT

DRUGS (3)
  1. TORIPALIMAB [Suspect]
     Active Substance: TORIPALIMAB
     Indication: Malignant melanoma
     Route: 041
     Dates: start: 20250726, end: 20250726
  2. NEDAPLATIN [Suspect]
     Active Substance: NEDAPLATIN
     Indication: Malignant melanoma
     Dosage: 40 MG, QD
     Route: 041
     Dates: start: 20250727, end: 20250728
  3. DACARBAZINE [Suspect]
     Active Substance: DACARBAZINE
     Indication: Malignant melanoma
     Route: 041
     Dates: start: 20250727, end: 20250727

REACTIONS (1)
  - Myelosuppression [Recovering/Resolving]

NARRATIVE: CASE EVENT DATE: 20250821
